FAERS Safety Report 16860464 (Version 1)
Quarter: 2019Q3

REPORT INFORMATION
  Report Type: Spontaneous
  Country: US (occurrence: US)
  Receive Date: 20190806
  Receipt Date: 20190806
  Transmission Date: 20191005
  Serious: Yes (Other)
  Sender: FDA-Public Use
  Company Number: None

PATIENT
  Age: 21 Year
  Sex: Male
  Weight: 81.65 kg

DRUGS (1)
  1. SEYSARA [Suspect]
     Active Substance: SARECYCLINE HYDROCHLORIDE
     Indication: ACNE
     Dates: start: 20190401, end: 20190713

REACTIONS (9)
  - Yellow skin [None]
  - Ocular icterus [None]
  - Decreased appetite [None]
  - Aspartate aminotransferase abnormal [None]
  - Fatigue [None]
  - Weight decreased [None]
  - Jaundice [None]
  - Liver injury [None]
  - Alanine aminotransferase abnormal [None]

NARRATIVE: CASE EVENT DATE: 20190712
